FAERS Safety Report 7667609-3 (Version None)
Quarter: 2011Q3

REPORT INFORMATION
  Report Type: 
  Country: None (occurrence: None)
  Receive Date: 20110806
  Receipt Date: 20110406
  Transmission Date: 20111222
  Serious: No
  Sender: FDA-Public Use
  Company Number: US-ABBOTT-11P-163-0717825-00

PATIENT
  Sex: Male
  Weight: 86.26 kg

DRUGS (7)
  1. BUPROPION HCL [Concomitant]
     Indication: DEPRESSION
  2. NIASPAN [Suspect]
     Indication: BLOOD CHOLESTEROL INCREASED
     Dates: start: 20100801, end: 20101101
  3. SEROQUEL [Concomitant]
     Indication: DEPRESSION
  4. NIASPAN [Suspect]
     Dates: start: 20110325
  5. LEVOTHYROXINE SODIUM [Concomitant]
     Indication: HYPOTHYROIDISM
  6. NIASPAN [Suspect]
     Indication: BLOOD TRIGLYCERIDES INCREASED
     Dates: start: 20101101, end: 20110324
  7. LUNESTA [Concomitant]
     Indication: SLEEP DISORDER THERAPY

REACTIONS (2)
  - BLOOD GLUCOSE INCREASED [None]
  - BLOOD CHOLESTEROL INCREASED [None]
